FAERS Safety Report 7003870-6 (Version None)
Quarter: 2010Q3

REPORT INFORMATION
  Report Type: 
  Country: None (occurrence: None)
  Receive Date: 20100920
  Receipt Date: 20091221
  Transmission Date: 20110219
  Serious: No
  Sender: FDA-Public Use
  Company Number: US-WYE-H12740809

PATIENT
  Sex: Female
  Weight: 63.56 kg

DRUGS (4)
  1. PRISTIQ [Suspect]
     Indication: ANXIETY
     Route: 048
     Dates: start: 20090401, end: 20091023
  2. PRISTIQ [Suspect]
     Dosage: BEGAN TO TAPER OFF, WAS CUTTING TABLET IN HALF
     Route: 048
     Dates: start: 20091024, end: 20091121
  3. NORVASC [Concomitant]
  4. SPIRONOLACTONE [Concomitant]

REACTIONS (6)
  - ANXIETY [None]
  - DIZZINESS [None]
  - DRUG WITHDRAWAL SYNDROME [None]
  - HYPOACUSIS [None]
  - PANIC ATTACK [None]
  - PARAESTHESIA [None]
